FAERS Safety Report 6364817-9 (Version None)
Quarter: 2009Q3

REPORT INFORMATION
  Report Type: 
  Country: None (occurrence: None)
  Receive Date: 20090919
  Receipt Date: 20090730
  Transmission Date: 20100115
  Serious: No
  Sender: FDA-Public Use
  Company Number: US-ABBOTT-09P-163-0588611-00

PATIENT
  Sex: Female
  Weight: 65.83 kg

DRUGS (4)
  1. HUMIRA [Suspect]
     Indication: RHEUMATOID ARTHRITIS
     Dates: start: 20090714
  2. HUMIRA [Suspect]
     Dates: start: 20070301
  3. HUMIRA [Suspect]
     Dates: end: 20090601
  4. LEFLUNOMIDE [Concomitant]
     Indication: DRUG USE FOR UNKNOWN INDICATION

REACTIONS (5)
  - ARTHRALGIA [None]
  - HERPES SIMPLEX [None]
  - INFLUENZA LIKE ILLNESS [None]
  - MALAISE [None]
  - RHEUMATOID ARTHRITIS [None]
